FAERS Safety Report 4600268-2 (Version None)
Quarter: 2005Q1

REPORT INFORMATION
  Report Type: 
  Country: None (occurrence: None)
  Receive Date: 20050307
  Receipt Date: 20050302
  Transmission Date: 20050727
  Serious: Yes (Life-Threatening)
  Sender: FDA-Public Use
  Company Number: FR-GLAXOSMITHKLINE-B0373355A

PATIENT
  Age: 34 Year
  Sex: Male

DRUGS (2)
  1. AUGMENTIN '125' [Suspect]
     Dosage: 1G SINGLE DOSE
     Route: 048
     Dates: start: 20041118, end: 20041118
  2. ACETAMINOPHEN [Concomitant]
     Dosage: 1G SINGLE DOSE
     Route: 048
     Dates: start: 20041118, end: 20041118

REACTIONS (5)
  - ANAPHYLACTIC SHOCK [None]
  - GENERALISED OEDEMA [None]
  - MALAISE [None]
  - URTICARIA [None]
  - VOMITING [None]
